FAERS Safety Report 5528195-7 (Version None)
Quarter: 2007Q4

REPORT INFORMATION
  Report Type: 
  Country: None (occurrence: None)
  Receive Date: 20071121
  Receipt Date: 20071108
  Transmission Date: 20080405
  Serious: Yes (Other)
  Sender: FDA-Public Use
  Company Number: 163921ISR

PATIENT
  Age: 56 Year
  Sex: Female

DRUGS (1)
  1. METRONIDAZOLE [Suspect]
     Indication: GIARDIASIS
     Dosage: 1200 MG (400 MG, 3 IN 1 D) ORAL
     Route: 048
     Dates: start: 20070928, end: 20071005

REACTIONS (1)
  - HEPATITIS [None]
